FAERS Safety Report 7074801-8 (Version None)
Quarter: 2010Q4

REPORT INFORMATION
  Report Type: 
  Country: None (occurrence: None)
  Receive Date: 20101029
  Receipt Date: 20101021
  Transmission Date: 20110411
  Serious: Yes (Hospitalization)
  Sender: FDA-Public Use
  Company Number: CA-AMGEN-CANSP2010000930

PATIENT

DRUGS (5)
  1. ENBREL [Suspect]
     Indication: RHEUMATOID ARTHRITIS
     Dosage: 50 MG, QWK
     Route: 058
     Dates: start: 20070101, end: 20100501
  2. PERCOCET [Concomitant]
     Dosage: UNK UNK, PRN
     Route: 048
  3. ATIVAN [Concomitant]
     Dosage: 1 MG, UNK
  4. NAPROSYN [Concomitant]
     Dosage: 500 MG, UNK
     Route: 048
  5. PANTOLOC                           /01263201/ [Concomitant]
     Dosage: 40 MG, UNK
     Route: 048

REACTIONS (1)
  - SPINAL FUSION SURGERY [None]
